FAERS Safety Report 5218334-X (Version None)
Quarter: 2007Q1

REPORT INFORMATION
  Report Type: 
  Country: None (occurrence: None)
  Receive Date: 20070123
  Receipt Date: 20070123
  Transmission Date: 20070707
  Serious: No
  Sender: FDA-Public Use
  Company Number: None

PATIENT
  Age: 55 Year
  Sex: Male

DRUGS (2)
  1. HEPARIN SODIUM 1,000 UNITS IN DEXTROSE 5% [Suspect]
     Dosage: DRIP TITRATE PER PROTOCO
     Dates: start: 20061031, end: 20061118
  2. PIPERACILLIN AND TAZOBACTAM [Suspect]

REACTIONS (1)
  - HEPARIN-INDUCED THROMBOCYTOPENIA [None]
